FAERS Safety Report 6660250-0 (Version None)
Quarter: 2010Q1

REPORT INFORMATION
  Report Type: 
  Country: None (occurrence: None)
  Receive Date: 20100331
  Receipt Date: 20100305
  Transmission Date: 20100710
  Serious: No
  Sender: FDA-Public Use
  Company Number: 2009BI035519

PATIENT
  Sex: Male

DRUGS (1)
  1. TYSABRI [Suspect]
     Indication: MULTIPLE SCLEROSIS
     Route: 042
     Dates: start: 20090928

REACTIONS (11)
  - DEAFNESS UNILATERAL [None]
  - DEHYDRATION [None]
  - DYSURIA [None]
  - FATIGUE [None]
  - HEADACHE [None]
  - HEART RATE INCREASED [None]
  - HYPERTENSION [None]
  - LOSS OF CONTROL OF LEGS [None]
  - MIGRAINE [None]
  - SKIN LACERATION [None]
  - TINNITUS [None]
